FAERS Safety Report 9702207 (Version 3)
Quarter: 2013Q4

REPORT INFORMATION
  Report Type: Report from Study
  Country: BR (occurrence: BR)
  Receive Date: 20131121
  Receipt Date: 20131219
  Transmission Date: 20140711
  Serious: Yes (Hospitalization, Other)
  Sender: FDA-Public Use
  Company Number: BR-ROCHE-1284361

PATIENT
  Sex: Female
  Weight: 77 kg

DRUGS (2)
  1. ACTEMRA [Suspect]
     Indication: RHEUMATOID ARTHRITIS
     Dosage: 200MG/10ML 1FAMP, LAST INFUSION WAS DONE IN JULY
     Route: 042
     Dates: start: 201209, end: 201307
  2. CAPTOPRIL [Concomitant]

REACTIONS (3)
  - Pulmonary mass [Recovered/Resolved]
  - Tuberculosis [Recovered/Resolved]
  - Diverticulitis [Recovered/Resolved]
